FAERS Safety Report 6190600-3 (Version None)
Quarter: 2009Q2

REPORT INFORMATION
  Report Type: 
  Country: None (occurrence: None)
  Receive Date: 20090514
  Receipt Date: 20090312
  Transmission Date: 20091009
  Serious: No
  Sender: FDA-Public Use
  Company Number: US-BRISTOL-MYERS SQUIBB COMPANY-14527071

PATIENT
  Age: 40 Year
  Sex: Female
  Weight: 83 kg

DRUGS (4)
  1. IXEMPRA KIT [Suspect]
     Indication: BREAST CANCER
  2. ZOLADEX [Concomitant]
  3. ARIMIDEX [Concomitant]
  4. PROCRIT [Concomitant]

REACTIONS (1)
  - DRUG ADMINISTRATION ERROR [None]
